FAERS Safety Report 5799379-8 (Version None)
Quarter: 2008Q3

REPORT INFORMATION
  Report Type: 
  Country: None (occurrence: None)
  Receive Date: 20080703
  Receipt Date: 20080621
  Transmission Date: 20090109
  Serious: Yes (Other)
  Sender: FDA-Public Use
  Company Number: US-PFIZER INC-2008054000

PATIENT
  Sex: Female
  Weight: 54.5 kg

DRUGS (5)
  1. CHANTIX [Suspect]
     Indication: SMOKING CESSATION THERAPY
     Dates: start: 20080101, end: 20080620
  2. IMITREX [Concomitant]
  3. EXCEDRIN (MIGRAINE) [Concomitant]
  4. NIFEDIPINE [Concomitant]
  5. FOLIC ACID [Concomitant]

REACTIONS (1)
  - MENORRHAGIA [None]
